FAERS Safety Report 9510584 (Version 2)
Quarter: 2014Q1

REPORT INFORMATION
  Report Type: Spontaneous
  Country: US (occurrence: US)
  Receive Date: 20130909
  Receipt Date: 20140317
  Transmission Date: 20141002
  Serious: Yes (Death, Hospitalization, Other)
  Sender: FDA-Public Use
  Company Number: US-B.I. PHARMACEUTICALS,INC./RIDGEFIELD-2013-BI-27660BP

PATIENT
  Age: 54 Year
  Sex: Male
  Weight: 70.31 kg

DRUGS (6)
  1. PRADAXA [Suspect]
     Indication: ANTICOAGULANT THERAPY
     Dosage: 300 MG
     Route: 048
     Dates: start: 20110713, end: 20110827
  2. PRADAXA [Suspect]
     Indication: ATRIAL FIBRILLATION
  3. METOPROLOL [Concomitant]
     Dosage: 100 MG
     Route: 048
  4. ASPIRIN [Concomitant]
     Dosage: 81 MG
     Route: 048
  5. LISINOPRIL [Concomitant]
     Dosage: 5 MG
     Route: 048
  6. ZOCOR [Concomitant]
     Dosage: 20 MG
     Route: 048
     Dates: start: 20110829, end: 20110829

REACTIONS (5)
  - Cerebral haemorrhage [Fatal]
  - Post procedural haemorrhage [Unknown]
  - Haemorrhagic anaemia [Unknown]
  - Thrombocytopenia [Unknown]
  - Haematochezia [Unknown]
